FAERS Safety Report 21921144 (Version 1)
Quarter: 2023Q1

REPORT INFORMATION
  Report Type: Spontaneous
  Country: US (occurrence: US)
  Receive Date: 20230127
  Receipt Date: 20230127
  Transmission Date: 20230418
  Serious: No
  Sender: FDA-Public Use
  Company Number: US-BAXTER-2023BAX011068

PATIENT
  Age: 59 Year
  Sex: Male
  Weight: 158.73 kg

DRUGS (1)
  1. EXTRANEAL [Suspect]
     Active Substance: CALCIUM CHLORIDE\ICODEXTRIN\MAGNESIUM CHLORIDE\SODIUM CHLORIDE\SODIUM LACTATE
     Indication: Peritoneal dialysis
     Route: 033

REACTIONS (3)
  - Rash vesicular [Unknown]
  - Rash erythematous [Unknown]
  - Rash [Unknown]

NARRATIVE: CASE EVENT DATE: 20230110
